FAERS Safety Report 12698703 (Version 1)
Quarter: 2016Q3

REPORT INFORMATION
  Report Type: Spontaneous
  Country: JP (occurrence: JP)
  Receive Date: 20160830
  Receipt Date: 20160830
  Transmission Date: 20161109
  Serious: Yes (Hospitalization, Other)
  Sender: FDA-Public Use
  Company Number: JP-CITRON PHARMA LLC-B16-0104-AE

PATIENT
  Age: 46 Year
  Sex: Male

DRUGS (3)
  1. NACL [Suspect]
     Active Substance: SODIUM CHLORIDE
     Indication: CEREBRAL SALT-WASTING SYNDROME
     Dosage: UNK
     Route: 065
  2. IPRAGLIFLOZIN [Suspect]
     Active Substance: IPRAGLIFLOZIN
     Indication: HYPONATRAEMIA
     Dosage: UNK
     Route: 048
  3. FLUDROCORTISONE ACETATE. [Suspect]
     Active Substance: FLUDROCORTISONE ACETATE
     Indication: CEREBRAL SALT-WASTING SYNDROME
     Dosage: UNK
     Route: 065

REACTIONS (4)
  - Diabetic nephropathy [Unknown]
  - Diabetic retinopathy [Unknown]
  - Glycosuria [Unknown]
  - Off label use [Unknown]
